FAERS Safety Report 5412868-0 (Version None)
Quarter: 2007Q3

REPORT INFORMATION
  Report Type: 
  Country: None (occurrence: None)
  Receive Date: 20070801
  Receipt Date: 20070718
  Transmission Date: 20080115
  Serious: Yes (Other)
  Sender: FDA-Public Use
  Company Number: THYM-11500

PATIENT
  Sex: Female

DRUGS (5)
  1. THYMOGLOBULIN [Suspect]
     Indication: KIDNEY TRANSPLANT REJECTION
  2. THYMOGLOBULIN [Suspect]
     Indication: PANCREAS TRANSPLANT REJECTION
  3. INSULIN [Concomitant]
  4. MYCOPHENOLATE MOFETIL [Concomitant]
  5. AZATHIOPRINE [Concomitant]

REACTIONS (3)
  - COMPLICATIONS OF TRANSPLANTED PANCREAS [None]
  - DRUG EXPOSURE DURING PREGNANCY [None]
  - RENAL IMPAIRMENT [None]
